FAERS Safety Report 18667143 (Version 1)
Quarter: 2020Q4

REPORT INFORMATION
  Report Type: Spontaneous
  Country: US (occurrence: US)
  Receive Date: 20201228
  Receipt Date: 20201228
  Transmission Date: 20210114
  Serious: No
  Sender: FDA-Public Use
  Company Number: US-CELGENEUS-USA-20201206013

PATIENT
  Sex: Female

DRUGS (4)
  1. THALOMID [Suspect]
     Active Substance: THALIDOMIDE
     Dosage: 200-150 MILLIGRAM
     Route: 048
     Dates: start: 201906
  2. THALOMID [Suspect]
     Active Substance: THALIDOMIDE
     Indication: OFF LABEL USE
     Dosage: 150-200 MILLIGRAM
     Route: 048
     Dates: start: 201704
  3. THALOMID [Suspect]
     Active Substance: THALIDOMIDE
     Dosage: TAKE 1 CAPSULE EVERY MORNING AND 1 CAPSULE EVERY EVENING (EVENING DOSE WITH 100 MG)
     Route: 048
     Dates: start: 202001
  4. THALOMID [Suspect]
     Active Substance: THALIDOMIDE
     Indication: NEURODERMATITIS
     Dosage: 100 MILLIGRAM
     Route: 048
     Dates: start: 201701

REACTIONS (1)
  - Tooth disorder [Unknown]
